FAERS Safety Report 8455400-X (Version None)
Quarter: 2012Q2

REPORT INFORMATION
  Report Type: 
  Country: None (occurrence: None)
  Receive Date: 20120621
  Receipt Date: 20120611
  Transmission Date: 20120825
  Serious: Yes (Other)
  Sender: FDA-Public Use
  Company Number: ES-BRISTOL-MYERS SQUIBB COMPANY-16680266

PATIENT
  Age: 70 Year
  Sex: Female

DRUGS (1)
  1. DASATINIB [Suspect]

REACTIONS (1)
  - SQUAMOUS CELL CARCINOMA OF SKIN [None]
